FAERS Safety Report 13062108 (Version 2)
Quarter: 2017Q1

REPORT INFORMATION
  Report Type: Report from Study
  Country: US (occurrence: US)
  Receive Date: 20161226
  Receipt Date: 20170127
  Transmission Date: 20170428
  Serious: Yes (Disabling)
  Sender: FDA-Public Use
  Company Number: PHEH2016US033335

PATIENT
  Age: 77 Year
  Sex: Female
  Weight: 64.4 kg

DRUGS (1)
  1. TOBI [Suspect]
     Active Substance: TOBRAMYCIN
     Indication: BRONCHIECTASIS
     Dosage: 4 ML, BID
     Route: 055
     Dates: start: 20161210, end: 20161210

REACTIONS (3)
  - Dysphonia [Recovered/Resolved]
  - Product use issue [Unknown]
  - Aphonia [Recovered/Resolved]

NARRATIVE: CASE EVENT DATE: 20161210
